FAERS Safety Report 5276453-6 (Version None)
Quarter: 2007Q1

REPORT INFORMATION
  Report Type: 
  Country: None (occurrence: None)
  Receive Date: 20061213
  Receipt Date: 20040326
  Transmission Date: 20070707
  Serious: Yes (Hospitalization)
  Sender: FDA-Public Use
  Company Number: 2004UW02221

PATIENT
  Age: 79 Year
  Sex: Female
  Weight: 65.7716 kg

DRUGS (5)
  1. SEROQUEL [Suspect]
     Dosage: 125 MG DAILY PO
     Route: 048
     Dates: start: 20020101, end: 20040217
  2. ZOLOFT [Concomitant]
  3. REMERON [Concomitant]
  4. HYDROCHLOROTHIAZIDE [Concomitant]
  5. CLONAZEPAM [Concomitant]

REACTIONS (1)
  - DEEP VEIN THROMBOSIS [None]
